FAERS Safety Report 9103467 (Version 1)
Quarter: 2013Q1

REPORT INFORMATION
  Report Type: Spontaneous
  Country: US (occurrence: US)
  Receive Date: 20130218
  Receipt Date: 20130218
  Transmission Date: 20140127
  Serious: Yes (Hospitalization)
  Sender: FDA-Public Use
  Company Number: US-GLAXOSMITHKLINE-A0791887A

PATIENT
  Age: 69 Year
  Sex: Female

DRUGS (1)
  1. AVANDIA [Suspect]
     Indication: DIABETES MELLITUS
     Dosage: 8MG PER DAY
     Route: 048
     Dates: start: 200603, end: 2007

REACTIONS (4)
  - Atrial fibrillation [Not Recovered/Not Resolved]
  - Pulmonary hypertension [Unknown]
  - Cardiac failure congestive [Unknown]
  - Cardiac operation [Unknown]
